FAERS Safety Report 4801539-7 (Version None)
Quarter: 2005Q4

REPORT INFORMATION
  Report Type: 
  Country: None (occurrence: None)
  Receive Date: 20051018
  Receipt Date: 20051003
  Transmission Date: 20060501
  Serious: Yes (Hospitalization)
  Sender: FDA-Public Use
  Company Number: SEWYE024904OCT05

PATIENT
  Sex: Male

DRUGS (12)
  1. ENBREL [Suspect]
     Indication: RHEUMATOID ARTHRITIS
     Route: 058
     Dates: start: 20020101, end: 20050819
  2. PREDNISOLONE [Concomitant]
     Dosage: 5 MG PER DAY
  3. SELOKEN [Concomitant]
     Dosage: 50 MG PER DAY
  4. ASPIRIN [Concomitant]
     Dosage: 75 MG PER DAY
  5. ISOSORBIDE MONONITRATE [Concomitant]
     Dosage: 100 MG PER DAY
  6. NORVASC [Concomitant]
     Dosage: 5 MG PER DAY
  7. ENALAPRIL MALEATE [Concomitant]
     Dosage: 10 MG PER DAY
  8. ZOCOR [Concomitant]
     Dosage: 10 MG PER DAY
  9. DAONIL [Concomitant]
     Dosage: 3,5 MG PER DAY
  10. LOSEC [Concomitant]
     Dosage: 20 MG PER DAY
  11. RISEDRONATE [Concomitant]
  12. CALCIUM GLUCONATE [Concomitant]

REACTIONS (2)
  - LUNG NEOPLASM [None]
  - RESPIRATION ABNORMAL [None]
